FAERS Safety Report 5163082-8 (Version None)
Quarter: 2006Q4

REPORT INFORMATION
  Report Type: 
  Country: None (occurrence: None)
  Receive Date: 20061201
  Receipt Date: 20061011
  Transmission Date: 20070319
  Serious: Yes (Other)
  Sender: FDA-Public Use
  Company Number: JP-MERCK-0610USA09869

PATIENT
  Age: 63 Year
  Sex: Female
  Weight: 52 kg

DRUGS (6)
  1. PRIMAXIN [Suspect]
     Indication: PNEUMONIA
     Route: 042
     Dates: start: 20060313, end: 20060313
  2. PRIMAXIN [Suspect]
     Route: 042
     Dates: start: 20051212, end: 20051213
  3. VANCOMYCIN HYDROCHLORIDE [Concomitant]
     Indication: INFECTION
     Route: 042
     Dates: start: 20060116
  4. VANCOMYCIN HYDROCHLORIDE [Concomitant]
     Route: 042
     Dates: start: 20060313
  5. ARBEKACIN [Concomitant]
     Route: 065
  6. AMPICILLIN SODIUM AND SULBACTAM SODIUM [Concomitant]
     Route: 065

REACTIONS (3)
  - CONVULSION [None]
  - ERYTHEMA [None]
  - MENINGITIS BACTERIAL [None]
